FAERS Safety Report 15557899 (Version 1)
Quarter: 2018Q4

REPORT INFORMATION
  Report Type: Spontaneous
  Country: ES (occurrence: ES)
  Receive Date: 20181027
  Receipt Date: 20181027
  Transmission Date: 20190205
  Serious: Yes (Hospitalization)
  Sender: FDA-Public Use
  Company Number: ES-009507513-1810ESP007875

PATIENT
  Age: 84 Year
  Sex: Female

DRUGS (4)
  1. LOSARTAN POTASSIUM AND HYDROCHLOROTHIAZIDE [Suspect]
     Active Substance: HYDROCHLOROTHIAZIDE\LOSARTAN POTASSIUM
     Indication: HYPERTENSION
     Dosage: 1-0-0
     Route: 048
     Dates: start: 20171009, end: 20180320
  2. TRYPTIZOL [Interacting]
     Active Substance: AMITRIPTYLINE HYDROCHLORIDE
     Indication: HEADACHE
     Dosage: 5 MG, (0-0-1), UNK
     Route: 048
     Dates: start: 20180315, end: 20180320
  3. SERTRALINE HYDROCHLORIDE. [Interacting]
     Active Substance: SERTRALINE HYDROCHLORIDE
     Indication: DEPRESSION
     Dosage: 100 MG, DAY
     Route: 048
     Dates: start: 20180308, end: 20180320
  4. SERTRALINE HYDROCHLORIDE. [Interacting]
     Active Substance: SERTRALINE HYDROCHLORIDE
     Dosage: 50 MG, QD
     Route: 048
     Dates: start: 20140101, end: 20180307

REACTIONS (1)
  - Inappropriate antidiuretic hormone secretion [Recovered/Resolved]

NARRATIVE: CASE EVENT DATE: 20180318
